FAERS Safety Report 11644325 (Version 1)
Quarter: 2015Q4

REPORT INFORMATION
  Report Type: Spontaneous
  Country: US (occurrence: None)
  Receive Date: 20151019
  Receipt Date: 20151019
  Transmission Date: 20160304
  Serious: No
  Sender: FDA-Public Use
  Company Number: None

PATIENT
  Age: 41 Year
  Sex: Female
  Weight: 65.77 kg

DRUGS (6)
  1. BELSOMRA [Suspect]
     Active Substance: SUVOREXANT
     Indication: INSOMNIA
     Dosage: AS NEEDED, AT NIGHT, 1 PILL AS NEEDED TAKEN BY MOUTH
     Route: 048
     Dates: start: 20150309
  2. ZETONNA [Concomitant]
     Active Substance: CICLESONIDE
  3. AMBIEN [Concomitant]
     Active Substance: ZOLPIDEM TARTRATE
  4. LEVORA [Concomitant]
     Active Substance: ETHINYL ESTRADIOL\LEVONORGESTREL
  5. WELLBUTRIN [Concomitant]
     Active Substance: BUPROPION HYDROCHLORIDE
  6. ZYRTEC [Concomitant]
     Active Substance: CETIRIZINE HYDROCHLORIDE

REACTIONS (7)
  - Back pain [None]
  - Alcohol use [None]
  - Somnambulism [None]
  - Fall [None]
  - Intentional product misuse [None]
  - Neck pain [None]
  - Contusion [None]

NARRATIVE: CASE EVENT DATE: 20150310
